FAERS Safety Report 6738572-4 (Version None)
Quarter: 2010Q2

REPORT INFORMATION
  Report Type: 
  Country: None (occurrence: None)
  Receive Date: 20100524
  Receipt Date: 20100514
  Transmission Date: 20101027
  Serious: Yes (Other)
  Sender: FDA-Public Use
  Company Number: VE-PFIZER INC-2010061027

PATIENT
  Age: 28 Year
  Sex: Female

DRUGS (1)
  1. DEPO-PROVERA [Suspect]
     Indication: CONTRACEPTION
     Dosage: 150 MG, SINGLE
     Route: 030
     Dates: start: 20100304

REACTIONS (5)
  - CONTUSION [None]
  - FLUID RETENTION [None]
  - HEADACHE [None]
  - UTERINE HAEMORRHAGE [None]
  - WEIGHT INCREASED [None]
